FAERS Safety Report 9251667 (Version 1)
Quarter: 2013Q1

REPORT INFORMATION
  Report Type: Spontaneous
  Country: US (occurrence: None)
  Receive Date: 20130305
  Receipt Date: 20130305
  Transmission Date: 20140127
  Serious: Yes (Other)
  Sender: FDA-Public Use
  Company Number: 163-21880-12090831

PATIENT
  Age: 83 Year
  Sex: Male
  Weight: 106.14 kg

DRUGS (6)
  1. REVLIMID (LENALIDOMIDE) [Suspect]
     Indication: PLASMA CELL MYELOMA
     Route: 048
     Dates: start: 20120810
  2. HIGH BLOOD PRESSURE MEDICINE (ANTIHYPERSENSITIVES) [Concomitant]
  3. GLIPIZIDE (GLIPIZIDE) [Concomitant]
  4. LIPITOR (ATORVASTATIN) [Concomitant]
  5. FAMCICLOVIR [Concomitant]
  6. DEXAMETHASONE [Concomitant]

REACTIONS (1)
  - Diarrhoea [None]
